APPROVED DRUG PRODUCT: NYSTATIN
Active Ingredient: NYSTATIN
Strength: 100,000 UNITS/ML
Dosage Form/Route: SUSPENSION;ORAL
Application: A064042 | Product #001
Applicant: PAI HOLDINGS LLC DBA PHARMACEUTICAL ASSOCIATES INC AND DBA PAI PHARMA
Approved: Feb 28, 1994 | RLD: No | RS: No | Type: DISCN